FAERS Safety Report 4650533-8 (Version None)
Quarter: 2005Q2

REPORT INFORMATION
  Report Type: 
  Country: None (occurrence: None)
  Receive Date: 20050429
  Receipt Date: 20050420
  Transmission Date: 20051028
  Serious: Yes (Hospitalization)
  Sender: FDA-Public Use
  Company Number: 2005-03-0419

PATIENT
  Age: 41 Year
  Sex: Male
  Weight: 75 kg

DRUGS (3)
  1. CELESTONE [Suspect]
     Indication: BRONCHOPNEUMOPATHY
     Dosage: 2 MG QD ORAL
     Route: 048
     Dates: start: 20050318, end: 20050323
  2. RHINATHIOL SYRUP [Suspect]
     Indication: BRONCHOPNEUMOPATHY
     Dosage: 1-3 SPOONS QD ORAL
     Route: 048
  3. AMOXICILLIN [Concomitant]

REACTIONS (3)
  - DUODENAL ULCER [None]
  - GASTROINTESTINAL HAEMORRHAGE [None]
  - HAEMATEMESIS [None]
